FAERS Safety Report 4592586-1 (Version None)
Quarter: 2005Q1

REPORT INFORMATION
  Report Type: 
  Country: None (occurrence: None)
  Receive Date: 20050222
  Receipt Date: 20050204
  Transmission Date: 20050727
  Serious: No
  Sender: FDA-Public Use
  Company Number: 2005AP01016

PATIENT
  Age: 56 Year
  Sex: Female

DRUGS (9)
  1. LIGNOCAINE [Suspect]
     Dosage: 10 ML
     Dates: start: 20030716, end: 20030716
  2. PROTAMINE SULFATE [Suspect]
     Dosage: 30 MG IV
     Route: 042
     Dates: start: 20030716, end: 20030716
  3. PROGRAF [Concomitant]
  4. CCELLCEPT [Concomitant]
  5. NORVASC [Concomitant]
  6. PLAQUENIL [Concomitant]
  7. VENTOLIN [Concomitant]
  8. ACTRAPID [Concomitant]
  9. VISAPAQUE [Suspect]
     Dosage: 270MG IV
     Route: 042

REACTIONS (5)
  - DYSPNOEA [None]
  - EYE SWELLING [None]
  - HYPERHIDROSIS [None]
  - NAUSEA [None]
  - RASH [None]
